FAERS Safety Report 9361688 (Version 1)
Quarter: 2013Q2

REPORT INFORMATION
  Report Type: Spontaneous
  Country: FR (occurrence: FR)
  Receive Date: 20130621
  Receipt Date: 20130621
  Transmission Date: 20140414
  Serious: Yes (Hospitalization, Congenital Anomaly)
  Sender: FDA-Public Use
  Company Number: FR-ABBOTT-13X-056-1107740-00

PATIENT
  Sex: 0

DRUGS (1)
  1. DEPAKINE [Suspect]
     Indication: MATERNAL EXPOSURE TIMING UNSPECIFIED
     Route: 064

REACTIONS (10)
  - Foetal anticonvulsant syndrome [Not Recovered/Not Resolved]
  - Weight gain poor [Not Recovered/Not Resolved]
  - Dyspnoea [Not Recovered/Not Resolved]
  - Stridor [Not Recovered/Not Resolved]
  - Haemangioma [Not Recovered/Not Resolved]
  - Low set ears [Not Recovered/Not Resolved]
  - Lip disorder [Not Recovered/Not Resolved]
  - Cardiomegaly [Not Recovered/Not Resolved]
  - Congenital pulmonary artery anomaly [Not Recovered/Not Resolved]
  - Foetal exposure during pregnancy [Unknown]
